FAERS Safety Report 21804043 (Version 2)
Quarter: 2023Q2

REPORT INFORMATION
  Report Type: Report from Study
  Country: US (occurrence: US)
  Receive Date: 20230102
  Receipt Date: 20230405
  Transmission Date: 20230721
  Serious: No
  Sender: FDA-Public Use
  Company Number: US-ABBVIE-22K-163-4439479-00

PATIENT
  Age: 65 Year
  Sex: Male

DRUGS (1)
  1. SKYRIZI [Suspect]
     Active Substance: RISANKIZUMAB-RZAA
     Indication: Psoriasis
     Route: 058

REACTIONS (7)
  - Therapeutic response shortened [Not Recovered/Not Resolved]
  - Pruritus [Unknown]
  - Skin disorder [Unknown]
  - Therapeutic product effect decreased [Not Recovered/Not Resolved]
  - Skin exfoliation [Unknown]
  - Arthritis [Unknown]
  - Dry skin [Unknown]

NARRATIVE: CASE EVENT DATE: 20220401
